FAERS Safety Report 8606646-9 (Version None)
Quarter: 2012Q3

REPORT INFORMATION
  Report Type: 
  Country: None (occurrence: None)
  Receive Date: 20120820
  Receipt Date: 20120815
  Transmission Date: 20120928
  Serious: Yes (Disabling)
  Sender: FDA-Public Use
  Company Number: GB-PFIZER INC-2012199258

PATIENT
  Age: 87 Year
  Sex: Female
  Weight: 65 kg

DRUGS (6)
  1. SYMBICORT [Concomitant]
     Dosage: 2 DF, 2X/DAY
  2. ATORVASTATIN [Suspect]
     Indication: CARDIOVASCULAR EVENT PROPHYLAXIS
     Dosage: 40 MG, 1X/DAY
     Route: 048
     Dates: start: 20090101, end: 20120716
  3. OMEPRAZOLE [Concomitant]
     Indication: DYSPEPSIA
     Route: 048
  4. ACETYLSALICYLIC ACID [Concomitant]
     Dosage: 75 MG, 1X/DAY
     Route: 048
  5. CLOPIDEGREL [Concomitant]
     Indication: ISCHAEMIC HEART DISEASE PROPHYLAXIS
     Dosage: 75 MG, UNK
     Route: 048
  6. TERBUTALINE [Concomitant]
     Dosage: 2 DF, 4X/DAY
     Route: 055

REACTIONS (5)
  - BALANCE DISORDER [None]
  - ASTHENIA [None]
  - AMNESIA [None]
  - INCONTINENCE [None]
  - HYPERSOMNIA [None]
